FAERS Safety Report 18293092 (Version 1)
Quarter: 2020Q3

REPORT INFORMATION
  Report Type: Spontaneous
  Country: CA (occurrence: CA)
  Receive Date: 20200922
  Receipt Date: 20200922
  Transmission Date: 20201103
  Serious: Yes (Life-Threatening, Hospitalization, Other)
  Sender: FDA-Public Use
  Company Number: CA-ASTRAZENECA-2020SF19903

PATIENT
  Age: 76 Year
  Sex: Female
  Weight: 52 kg

DRUGS (15)
  1. MELATONIN [Concomitant]
     Active Substance: MELATONIN
  2. HUMALOG [Concomitant]
     Active Substance: INSULIN LISPRO
  3. XARELTO [Concomitant]
     Active Substance: RIVAROXABAN
  4. PERINDOPRIL [Concomitant]
     Active Substance: PERINDOPRIL
  5. LORAZEPAM. [Concomitant]
     Active Substance: LORAZEPAM
  6. METOCLOPRAMIDE. [Concomitant]
     Active Substance: METOCLOPRAMIDE
  7. PROBIOTIC [Concomitant]
     Active Substance: PROBIOTICS NOS
  8. XARELTO [Suspect]
     Active Substance: RIVAROXABAN
     Indication: PERIPHERAL VEIN OCCLUSION
     Route: 048
  9. DILAUDID [Concomitant]
     Active Substance: HYDROMORPHONE HYDROCHLORIDE
  10. GLICLAZIDE MR [Concomitant]
     Active Substance: GLICLAZIDE
  11. HYDROMORPH CONTIN [Concomitant]
     Active Substance: HYDROMORPHONE
  12. SENOKOT [Concomitant]
     Active Substance: SENNOSIDES
  13. VITAMIN D [Concomitant]
     Active Substance: VITAMIN D NOS
  14. CALQUENCE [Suspect]
     Active Substance: ACALABRUTINIB
     Indication: MANTLE CELL LYMPHOMA RECURRENT
     Route: 048
  15. METFORMIN [Concomitant]
     Active Substance: METFORMIN HYDROCHLORIDE

REACTIONS (3)
  - Febrile neutropenia [Unknown]
  - Anaemia [Unknown]
  - Occult blood positive [Unknown]
